FAERS Safety Report 13940338 (Version 1)
Quarter: 2017Q3

REPORT INFORMATION
  Report Type: Spontaneous
  Country: US (occurrence: US)
  Receive Date: 20170906
  Receipt Date: 20170906
  Transmission Date: 20171127
  Serious: No
  Sender: FDA-Public Use
  Company Number: US-BAYER-2017-161048

PATIENT

DRUGS (1)
  1. MIRALAX [Suspect]
     Active Substance: POLYETHYLENE GLYCOL 3350
     Indication: IRRITABLE BOWEL SYNDROME
     Dosage: UNK
     Route: 065

REACTIONS (4)
  - Product use in unapproved indication [Unknown]
  - Therapeutic response unexpected [Unknown]
  - Underdose [Unknown]
  - Inappropriate prescribing [Unknown]
